FAERS Safety Report 15321191 (Version 1)
Quarter: 2018Q3

REPORT INFORMATION
  Report Type: Spontaneous
  Country: US (occurrence: US)
  Receive Date: 20180821
  Receipt Date: 20180821
  Transmission Date: 20181010
  Serious: Yes (Disabling)
  Sender: FDA-Public Use
  Company Number: None

PATIENT
  Age: 81 Year
  Sex: Female
  Weight: 70.31 kg

DRUGS (12)
  1. HUMULIN NOS [Concomitant]
     Active Substance: INSULIN HUMAN
  2. VITAMIN D3 [Concomitant]
     Active Substance: CHOLECALCIFEROL
  3. ATORVASTATIN [Concomitant]
     Active Substance: ATORVASTATIN
  4. METFORMIN HCL [Concomitant]
     Active Substance: METFORMIN HYDROCHLORIDE
  5. ZANTAC [Concomitant]
     Active Substance: RANITIDINE HYDROCHLORIDE
  6. L?THYROXINE (SYNTHROID) TABS, 50MCG, GENERIC FOR SYNTHROID TABS [Suspect]
     Active Substance: LEVOTHYROXINE
     Dosage: ?          QUANTITY:1 DF DOSAGE FORM;?
     Route: 048
     Dates: end: 20180707
  7. TRADJENTA [Concomitant]
     Active Substance: LINAGLIPTIN
  8. HYDROCHLOROTHIAZIDE. [Concomitant]
     Active Substance: HYDROCHLOROTHIAZIDE
  9. DIPHENHYDRAMINE HCL [Concomitant]
     Active Substance: DIPHENHYDRAMINE HYDROCHLORIDE
  10. L?THYROXINE [Concomitant]
     Active Substance: LEVOTHYROXINE
  11. OCUVITE [Concomitant]
     Active Substance: VITAMINS
  12. ALEVE [Concomitant]
     Active Substance: NAPROXEN SODIUM

REACTIONS (3)
  - Pruritus generalised [None]
  - Alopecia [None]
  - Chest pain [None]
